FAERS Safety Report 24714479 (Version 2)
Quarter: 2024Q4

REPORT INFORMATION
  Report Type: Spontaneous
  Country: BR (occurrence: BR)
  Receive Date: 20241209
  Receipt Date: 20241220
  Transmission Date: 20250114
  Serious: Yes (Other)
  Sender: MERCK
  Company Number: BR-009507513-2412BRA001044

PATIENT
  Age: 71 Year
  Sex: Female

DRUGS (1)
  1. JANUMET XR [Suspect]
     Active Substance: METFORMIN HYDROCHLORIDE\SITAGLIPTIN PHOSPHATE
     Indication: Diabetes mellitus
     Dosage: STRENGTH: 50/1000 (UNITS NOT PROVIDED)
     Route: 048

REACTIONS (2)
  - Glaucoma [Unknown]
  - Hypertension [Unknown]
